FAERS Safety Report 9735153 (Version 1)
Quarter: 2013Q4

REPORT INFORMATION
  Report Type: Spontaneous
  Country: US (occurrence: US)
  Receive Date: 20131206
  Receipt Date: 20131206
  Transmission Date: 20140711
  Serious: Yes (Other)
  Sender: FDA-Public Use
  Company Number: US-TEVA-448624USA

PATIENT
  Age: 23 Year
  Sex: Female
  Weight: 69.92 kg

DRUGS (1)
  1. PARAGARD 380A [Suspect]
     Indication: CONTRACEPTION
     Route: 015
     Dates: start: 20131028, end: 20131127

REACTIONS (3)
  - Haemorrhage [Unknown]
  - Device dislocation [Recovered/Resolved]
  - Muscle spasms [Unknown]
